FAERS Safety Report 6423517-7 (Version None)
Quarter: 2009Q4

REPORT INFORMATION
  Report Type: 
  Country: None (occurrence: None)
  Receive Date: 20091030
  Receipt Date: 20091030
  Transmission Date: 20100525
  Serious: No
  Sender: FDA-Public Use
  Company Number: None

PATIENT
  Sex: Female
  Weight: 68.0396 kg

DRUGS (2)
  1. CITALOPRAM HYDROBROMIDE [Suspect]
  2. PAROXITINE 20MG AUROBINDO [Suspect]

REACTIONS (3)
  - MEDICATION ERROR [None]
  - PRODUCT SHAPE ISSUE [None]
  - PRODUCT SIZE ISSUE [None]
